FAERS Safety Report 9822351 (Version 3)
Quarter: 2014Q1

REPORT INFORMATION
  Report Type: Report from Study
  Country: GR (occurrence: GR)
  Receive Date: 20140116
  Receipt Date: 20140212
  Transmission Date: 20141002
  Serious: Yes (Hospitalization)
  Sender: FDA-Public Use
  Company Number: GR-ROCHE-1332538

PATIENT
  Age: 70 Year
  Sex: Male
  Weight: 63 kg

DRUGS (2)
  1. VISMODEGIB [Suspect]
     Indication: BASAL CELL CARCINOMA
     Route: 048
     Dates: start: 20130516
  2. PARACETAMOL [Concomitant]
     Indication: FRACTURE
     Route: 065
     Dates: start: 20130708, end: 20130711

REACTIONS (1)
  - Infected neoplasm [Recovered/Resolved]
